FAERS Safety Report 25206186 (Version 1)
Quarter: 2025Q2

REPORT INFORMATION
  Report Type: Report from Study
  Country: US (occurrence: US)
  Receive Date: 20250417
  Receipt Date: 20250417
  Transmission Date: 20250717
  Serious: Yes (Other)
  Sender: EISAI
  Company Number: US-Eisai-EC-2025-187549

PATIENT
  Age: 66 Year
  Sex: Male
  Weight: 88.4 kg

DRUGS (16)
  1. LENVIMA [Suspect]
     Active Substance: LENVATINIB
     Indication: Renal cell carcinoma
     Dates: start: 20230820, end: 202308
  2. LENVIMA [Suspect]
     Active Substance: LENVATINIB
     Dates: start: 202309, end: 202309
  3. LENVIMA [Suspect]
     Active Substance: LENVATINIB
     Dates: start: 20230906, end: 2023
  4. LENVIMA [Suspect]
     Active Substance: LENVATINIB
     Dosage: 3 DAYS ON 1 DAY OFF
     Dates: start: 202310
  5. LENVIMA [Suspect]
     Active Substance: LENVATINIB
     Dosage: 3 DAYS ON 1 DAY OFF
  6. LENVIMA [Suspect]
     Active Substance: LENVATINIB
     Dosage: 3 DAYS ON 1 DAY OFF
  7. AMLODIPINE [Concomitant]
     Active Substance: AMLODIPINE BESYLATE
  8. XARELTO [Concomitant]
     Active Substance: RIVAROXABAN
  9. KEYTRUDA [Concomitant]
     Active Substance: PEMBROLIZUMAB
     Indication: Product used for unknown indication
  10. HERBALS\TURMERIC [Concomitant]
     Active Substance: HERBALS\TURMERIC
  11. PROTONIX [Concomitant]
     Active Substance: PANTOPRAZOLE SODIUM
  12. KEPPRA [Concomitant]
     Active Substance: LEVETIRACETAM
  13. MEMANTINE [Concomitant]
     Active Substance: MEMANTINE
  14. DEXAMETHASONE [Concomitant]
     Active Substance: DEXAMETHASONE
  15. LOTREL [Concomitant]
     Active Substance: AMLODIPINE BESYLATE\BENAZEPRIL HYDROCHLORIDE
  16. VITAMIN C [Concomitant]
     Active Substance: ASCORBIC ACID

REACTIONS (1)
  - Myocardial infarction [Not Recovered/Not Resolved]
